FAERS Safety Report 5491093-1 (Version None)
Quarter: 2007Q4

REPORT INFORMATION
  Report Type: 
  Country: None (occurrence: None)
  Receive Date: 20071019
  Receipt Date: 20071009
  Transmission Date: 20080405
  Serious: Yes (Other)
  Sender: FDA-Public Use
  Company Number: US-PFIZER INC-2007061357

PATIENT
  Sex: Female
  Weight: 66 kg

DRUGS (6)
  1. LYRICA [Suspect]
     Indication: FIBROMYALGIA
  2. CYMBALTA [Concomitant]
  3. EFFEXOR [Concomitant]
  4. KLONOPIN [Concomitant]
  5. HYDROCODONE [Concomitant]
  6. ALL OTHER THERAPEUTIC PRODUCTS [Concomitant]

REACTIONS (5)
  - OEDEMA PERIPHERAL [None]
  - PAIN [None]
  - RASH [None]
  - SKIN LESION [None]
  - WEIGHT INCREASED [None]
